FAERS Safety Report 8347975-6 (Version None)
Quarter: 2012Q2

REPORT INFORMATION
  Report Type: 
  Country: None (occurrence: None)
  Receive Date: 20120509
  Receipt Date: 20120424
  Transmission Date: 20120825
  Serious: No
  Sender: FDA-Public Use
  Company Number: US-BAYER-2012-041494

PATIENT
  Age: 76 Year
  Sex: Female

DRUGS (4)
  1. ATENOLOL [Concomitant]
  2. NAPROXEN SODIUM [Suspect]
     Indication: ARTHRALGIA
     Dosage: 2 U, QD
     Route: 048
  3. VICODIN [Concomitant]
  4. GEMFIBROZIL [Concomitant]

REACTIONS (1)
  - NO ADVERSE EVENT [None]
